FAERS Safety Report 23121875 (Version 1)
Quarter: 2023Q4

REPORT INFORMATION
  Report Type: Spontaneous
  Country: US (occurrence: US)
  Receive Date: 20231030
  Receipt Date: 20231030
  Transmission Date: 20240110
  Serious: Yes (Other)
  Sender: FDA-Public Use
  Company Number: US-JNJFOC-20231054201

PATIENT
  Age: 44 Year
  Sex: Male

DRUGS (3)
  1. SPRAVATO [Suspect]
     Active Substance: ESKETAMINE
     Indication: Depression
     Dosage: THE PATIENT WAS GIVEN 3 SPRAYS (84 MG)
  2. ABILIFY [Concomitant]
     Active Substance: ARIPIPRAZOLE
  3. RISPERDAL [Concomitant]
     Active Substance: RISPERIDONE

REACTIONS (4)
  - Suicide attempt [Unknown]
  - Psychotic disorder [Unknown]
  - Hypersomnia [Unknown]
  - Amnesia [Unknown]

NARRATIVE: CASE EVENT DATE: 20230801
